FAERS Safety Report 19744315 (Version 1)
Quarter: 2021Q3

REPORT INFORMATION
  Report Type: Spontaneous
  Country: US (occurrence: US)
  Receive Date: 20210823
  Receipt Date: 20210823
  Transmission Date: 20211014
  Serious: Yes (Other)
  Sender: FDA-Public Use
  Company Number: None

PATIENT
  Sex: Female

DRUGS (2)
  1. SOTALOL HCL TABS [Suspect]
     Active Substance: SOTALOL HYDROCHLORIDE
  2. AMIODORONE HCL TABLETS [Suspect]
     Active Substance: AMIODARONE HYDROCHLORIDE

REACTIONS (1)
  - Drug ineffective [None]
